FAERS Safety Report 15007379 (Version 1)
Quarter: 2018Q2

REPORT INFORMATION
  Report Type: Spontaneous
  Country: GR (occurrence: GR)
  Receive Date: 20180613
  Receipt Date: 20180613
  Transmission Date: 20180711
  Serious: Yes (Hospitalization, Other)
  Sender: FDA-Public Use
  Company Number: PHHY2018GR016906

PATIENT
  Sex: Male

DRUGS (1)
  1. COSENTYX [Suspect]
     Active Substance: SECUKINUMAB
     Indication: PSORIASIS
     Dosage: UNK
     Route: 065
     Dates: start: 201710

REACTIONS (4)
  - Endocarditis staphylococcal [Recovered/Resolved]
  - Pyrexia [Recovered/Resolved]
  - Pericarditis [Unknown]
  - Endocarditis [Unknown]

NARRATIVE: CASE EVENT DATE: 201710
